FAERS Safety Report 4393611-3 (Version None)
Quarter: 2004Q3

REPORT INFORMATION
  Report Type: 
  Country: None (occurrence: None)
  Receive Date: 20040706
  Receipt Date: 20040706
  Transmission Date: 20050211
  Serious: Yes (Hospitalization)
  Sender: FDA-Public Use
  Company Number: None

PATIENT
  Age: 57 Year
  Sex: Male
  Weight: 116.1208 kg

DRUGS (1)
  1. INDOMETHACIN [Suspect]
     Indication: PAIN
     Dosage: ONE TID CHRONIC
     Dates: start: 20030606

REACTIONS (3)
  - BLOOD CREATININE INCREASED [None]
  - DRUG TOXICITY [None]
  - RECTAL HAEMORRHAGE [None]
